FAERS Safety Report 23323606 (Version 1)
Quarter: 2023Q4

REPORT INFORMATION
  Report Type: Spontaneous
  Country: US (occurrence: None)
  Receive Date: 20231220
  Receipt Date: 20231220
  Transmission Date: 20240109
  Serious: No
  Sender: FDA-Public Use
  Company Number: US-ROCHE-3371275

PATIENT

DRUGS (2)
  1. RITUXAN [Suspect]
     Active Substance: RITUXIMAB
     Indication: Product used for unknown indication
     Dosage: EXPIRATION DATE -FEB-2026
     Route: 065
  2. TRUXIMA [Concomitant]
     Active Substance: RITUXIMAB-ABBS

REACTIONS (2)
  - Intercepted product preparation error [Unknown]
  - No adverse event [Unknown]
